FAERS Safety Report 18773150 (Version 1)
Quarter: 2021Q1

REPORT INFORMATION
  Report Type: Spontaneous
  Country: US (occurrence: US)
  Receive Date: 20210121
  Receipt Date: 20210121
  Transmission Date: 20210419
  Serious: Yes (Death)
  Sender: FDA-Public Use
  Company Number: None

PATIENT
  Age: 89 Year
  Sex: Male

DRUGS (6)
  1. EQULIS [Concomitant]
  2. VYNDAQEL [Suspect]
     Active Substance: TAFAMIDIS MEGLUMINE
     Indication: AMYLOIDOSIS
     Route: 048
     Dates: start: 20200422, end: 20210114
  3. FINASTERIDE. [Concomitant]
     Active Substance: FINASTERIDE
  4. LORAZEPAM. [Concomitant]
     Active Substance: LORAZEPAM
  5. MORPHINE [Concomitant]
     Active Substance: MORPHINE
  6. HYOSCYAMMIBE [Concomitant]

REACTIONS (1)
  - Death [None]

NARRATIVE: CASE EVENT DATE: 20210114
